FAERS Safety Report 23688839 (Version 2)
Quarter: 2024Q2

REPORT INFORMATION
  Report Type: Spontaneous
  Country: IL (occurrence: IL)
  Receive Date: 20240329
  Receipt Date: 20240405
  Transmission Date: 20240716
  Serious: Yes (Death, Hospitalization, Other)
  Sender: FDA-Public Use
  Company Number: IL-GILEAD-2024-0664336

PATIENT
  Age: 68 Year
  Sex: Male

DRUGS (4)
  1. YESCARTA [Suspect]
     Active Substance: AXICABTAGENE CILOLEUCEL
     Indication: Follicular lymphoma
     Dosage: UNK
     Route: 042
     Dates: start: 20240225, end: 20240225
  2. YESCARTA [Suspect]
     Active Substance: AXICABTAGENE CILOLEUCEL
     Indication: Diffuse large B-cell lymphoma
  3. FLUDARABINE [Concomitant]
     Active Substance: FLUDARABINE PHOSPHATE
     Indication: Lymphodepletion
     Dosage: UNK
     Dates: start: 20240220
  4. CYCLOPHOSPHAMIDE [Concomitant]
     Active Substance: CYCLOPHOSPHAMIDE
     Indication: Lymphodepletion
     Dosage: UNK
     Dates: start: 20240220

REACTIONS (13)
  - Death [Fatal]
  - Acidosis [Unknown]
  - Blood lactate dehydrogenase abnormal [Unknown]
  - C-reactive protein abnormal [Unknown]
  - Serum ferritin increased [Unknown]
  - Serum ferritin abnormal [Unknown]
  - Pleural effusion [Unknown]
  - Febrile neutropenia [Unknown]
  - Hepatic enzyme increased [Unknown]
  - Respiratory distress [Unknown]
  - Hypotension [Unknown]
  - Renal impairment [Unknown]
  - Pyrexia [Unknown]

NARRATIVE: CASE EVENT DATE: 20240225
